FAERS Safety Report 21368727 (Version 1)
Quarter: 2022Q3

REPORT INFORMATION
  Report Type: Spontaneous
  Country: FR (occurrence: FR)
  Receive Date: 20220923
  Receipt Date: 20220923
  Transmission Date: 20221026
  Serious: Yes (Hospitalization)
  Sender: FDA-Public Use
  Company Number: None

PATIENT
  Age: 86 Year
  Sex: Female
  Weight: 44 kg

DRUGS (2)
  1. AMOXICILLIN [Suspect]
     Active Substance: AMOXICILLIN
     Indication: Meningitis
     Route: 065
     Dates: start: 20220520, end: 20220601
  2. VALACYCLOVIR HYDROCHLORIDE [Concomitant]
     Active Substance: VALACYCLOVIR HYDROCHLORIDE
     Indication: Meningitis
     Dates: start: 20220520

REACTIONS (2)
  - Acute kidney injury [Recovered/Resolved]
  - Crystalluria [Recovered/Resolved]

NARRATIVE: CASE EVENT DATE: 20220602
